FAERS Safety Report 5511011-7 (Version None)
Quarter: 2007Q4

REPORT INFORMATION
  Report Type: 
  Country: None (occurrence: None)
  Receive Date: 20071109
  Receipt Date: 20071031
  Transmission Date: 20080405
  Serious: Yes (Hospitalization, Other)
  Sender: FDA-Public Use
  Company Number: PHFR2007GB01903

PATIENT
  Age: 60 Year
  Sex: Female

DRUGS (10)
  1. CLOZARIL [Suspect]
     Indication: SCHIZOPHRENIA
     Route: 048
     Dates: start: 20070604, end: 20070606
  2. CLOZARIL [Suspect]
     Dosage: 75MG / DAY
     Route: 048
     Dates: start: 20070615, end: 20070615
  3. CLOZARIL [Suspect]
     Dosage: 100MG / DAY
     Route: 048
     Dates: start: 20070621, end: 20070623
  4. CLOZARIL [Suspect]
     Dosage: 100MG MANE, 200MG NOCTE
     Route: 048
     Dates: start: 20070924
  5. CLOZARIL [Suspect]
     Dates: start: 20070830
  6. PROCYCLIDINE HYDROCHLORIDE 2MG TAB [Concomitant]
     Indication: EXTRAPYRAMIDAL DISORDER
     Dosage: 5 MG, BID
     Route: 048
     Dates: start: 20070811
  7. MIRTAZAPINE [Concomitant]
     Indication: DEPRESSION
     Dosage: 45 MG, QD
     Route: 048
     Dates: start: 20070830
  8. AMISULPRIDE [Concomitant]
     Indication: PSYCHOTIC DISORDER
     Dosage: 200 MG, BID
     Route: 048
     Dates: start: 20070831
  9. MOVICOL [Concomitant]
     Indication: CONSTIPATION
     Dosage: 2 DF, BID
     Route: 048
     Dates: start: 20070912
  10. DOCUSATE [Concomitant]
     Indication: CONSTIPATION
     Dosage: 100 MG, BID
     Route: 048
     Dates: start: 20070829, end: 20071010

REACTIONS (13)
  - ASTHENIA [None]
  - CONFUSIONAL STATE [None]
  - CONSTIPATION [None]
  - DELIRIUM [None]
  - DISORIENTATION [None]
  - EMOTIONAL DISTRESS [None]
  - HAEMOGLOBIN DECREASED [None]
  - MALAISE [None]
  - NEUTROPHIL COUNT DECREASED [None]
  - RECTAL PROLAPSE [None]
  - SURGERY [None]
  - TACHYCARDIA [None]
  - WHITE BLOOD CELL COUNT DECREASED [None]
